FAERS Safety Report 6214690-4 (Version None)
Quarter: 2009Q2

REPORT INFORMATION
  Report Type: 
  Country: None (occurrence: None)
  Receive Date: 20090604
  Receipt Date: 20090526
  Transmission Date: 20091009
  Serious: Yes (Hospitalization)
  Sender: FDA-Public Use
  Company Number: FR-ASTRAZENECA-2009CG01012

PATIENT
  Age: 27839 Day
  Sex: Male

DRUGS (7)
  1. ATACAND [Suspect]
     Indication: HYPERTENSION
     Route: 048
     Dates: end: 20090407
  2. LASIX [Suspect]
     Route: 048
  3. DIFFU K [Concomitant]
     Route: 048
  4. BISOPROLOL [Concomitant]
     Route: 048
  5. KARDEGIC [Concomitant]
     Route: 048
  6. AMLOR [Concomitant]
     Route: 048
  7. NOVOMIX [Concomitant]
     Indication: INSULIN-REQUIRING TYPE 2 DIABETES MELLITUS
     Route: 058

REACTIONS (1)
  - HYPONATRAEMIA [None]
